FAERS Safety Report 7425489-5 (Version None)
Quarter: 2011Q2

REPORT INFORMATION
  Report Type: 
  Country: None (occurrence: None)
  Receive Date: 20110420
  Receipt Date: 20110405
  Transmission Date: 20111010
  Serious: Yes (Other)
  Sender: FDA-Public Use
  Company Number: US-SHIRE-ALL1-2011-00989

PATIENT
  Age: 14 Year
  Sex: Male
  Weight: 56.689 kg

DRUGS (4)
  1. VYVANSE [Suspect]
     Dosage: UNK MG, 1X/DAY:QD(UNKNOWN MG)
     Route: 048
  2. VYVANSE [Suspect]
     Dosage: 70 MG, 1X/DAY:QD
     Route: 048
     Dates: end: 20110401
  3. VYVANSE [Suspect]
     Indication: ATTENTION DEFICIT/HYPERACTIVITY DISORDER
     Dosage: 30 MG, 1X/DAY:QD
     Route: 048
  4. VYVANSE [Suspect]
     Dosage: 70 MG, 1X/DAY:QD
     Route: 048
     Dates: start: 20110404

REACTIONS (10)
  - AGITATION [None]
  - CYANOSIS [None]
  - PERSONALITY DISORDER [None]
  - DRUG DOSE OMISSION [None]
  - AGGRESSION [None]
  - PERIPHERAL COLDNESS [None]
  - FRUSTRATION [None]
  - PARAESTHESIA [None]
  - NEGATIVISM [None]
  - VIOLENCE-RELATED SYMPTOM [None]
